FAERS Safety Report 13222368 (Version 1)
Quarter: 2017Q1

REPORT INFORMATION
  Report Type: Report from Study
  Country: US (occurrence: US)
  Receive Date: 20170211
  Receipt Date: 20170211
  Transmission Date: 20170428
  Serious: Yes (Death, Hospitalization)
  Sender: FDA-Public Use
  Company Number: US-JNJFOC-20170128144

PATIENT
  Age: 42 Year
  Sex: Female
  Weight: 61.6 kg

DRUGS (6)
  1. IBUPROFEN. [Suspect]
     Active Substance: IBUPROFEN
     Indication: PRODUCT USED FOR UNKNOWN INDICATION
     Route: 048
     Dates: start: 201701
  2. AMOXICILLIN. [Suspect]
     Active Substance: AMOXICILLIN
     Indication: TOOTHACHE
     Route: 065
  3. APAP [Suspect]
     Active Substance: ACETAMINOPHEN
     Route: 048
  4. APAP [Suspect]
     Active Substance: ACETAMINOPHEN
     Indication: PRODUCT USED FOR UNKNOWN INDICATION
     Dosage: GREATER THAN OR EQUAL TO 6 GRAMS DAILY
     Route: 048
     Dates: start: 201701
  5. AMOXICILLIN. [Suspect]
     Active Substance: AMOXICILLIN
     Indication: TOOTH INFECTION
     Route: 065
  6. IBUPROFEN. [Suspect]
     Active Substance: IBUPROFEN
     Route: 048

REACTIONS (9)
  - Abdominal pain [Unknown]
  - Vomiting [Unknown]
  - Drug-induced liver injury [Fatal]
  - Escherichia bacteraemia [Fatal]
  - Overdose [Fatal]
  - Septic shock [Fatal]
  - Circulatory collapse [Fatal]
  - Respiratory failure [Fatal]
  - Renal failure [Fatal]

NARRATIVE: CASE EVENT DATE: 201701
